FAERS Safety Report 19332583 (Version 2)
Quarter: 2021Q2

REPORT INFORMATION
  Report Type: Other
  Country: US (occurrence: US)
  Receive Date: 20210529
  Receipt Date: 20210601
  Transmission Date: 20210717
  Serious: Yes (Other)
  Sender: FDA-Public Use
  Company Number: US-NOVA LABORATORIES LIMITED-2112124

PATIENT
  Age: 24 Year
  Sex: Male

DRUGS (6)
  1. PREDNISONE. [Suspect]
     Active Substance: PREDNISONE
  2. LEUCOVORIN. [Suspect]
     Active Substance: LEUCOVORIN
  3. VINBLASTINE [Suspect]
     Active Substance: VINBLASTINE
  4. CLADRIBINE. [Suspect]
     Active Substance: CLADRIBINE
  5. METHOTREXATE. [Suspect]
     Active Substance: METHOTREXATE
  6. PURIXAN [Suspect]
     Active Substance: MERCAPTOPURINE
     Indication: XANTHOGRANULOMA

REACTIONS (2)
  - Pancytopenia [Unknown]
  - Off label use [None]
